FAERS Safety Report 25359877 (Version 1)
Quarter: 2025Q2

REPORT INFORMATION
  Report Type: Report from Study
  Country: GB (occurrence: GB)
  Receive Date: 20250526
  Receipt Date: 20250526
  Transmission Date: 20250717
  Serious: Yes (Hospitalization)
  Sender: ABBVIE
  Company Number: GB-ABBVIE-6292441

PATIENT
  Age: 53 Year
  Sex: Male

DRUGS (1)
  1. SKYRIZI [Suspect]
     Active Substance: RISANKIZUMAB-RZAA
     Indication: Psoriasis
     Dosage: SKYRIZI 150MG/1ML SOLUTION FOR INJECTION PRE-FILLED PENS (ABBVIE LTD) 1 PRE-FILLED DISPOSABLE INJ...
     Route: 058
     Dates: end: 2024

REACTIONS (4)
  - Renal failure [Unknown]
  - Psoriasis [Unknown]
  - Sepsis [Unknown]
  - Cellulitis [Unknown]

NARRATIVE: CASE EVENT DATE: 20250101
